FAERS Safety Report 4692776-3 (Version None)
Quarter: 2005Q2

REPORT INFORMATION
  Report Type: 
  Country: None (occurrence: None)
  Receive Date: 20050617
  Receipt Date: 20050607
  Transmission Date: 20051028
  Serious: Yes (Hospitalization)
  Sender: FDA-Public Use
  Company Number: PHHO2005JP09071

PATIENT
  Age: 85 Year
  Sex: Male
  Weight: 61 kg

DRUGS (6)
  1. LOCHOL [Suspect]
     Indication: HYPERCHOLESTEROLAEMIA
     Dosage: 20 MG, QD
     Route: 048
     Dates: start: 20000520
  2. NITRAZEPAM [Concomitant]
     Indication: INSOMNIA
  3. AMARYL [Concomitant]
     Indication: DIABETES MELLITUS
  4. SEREVENT [Concomitant]
     Indication: EMPHYSEMA
  5. BASEN [Concomitant]
     Indication: DIABETES MELLITUS
  6. MEQUITAZINE [Concomitant]
     Indication: URTICARIA CHRONIC

REACTIONS (1)
  - PROSTATE CANCER [None]
